FAERS Safety Report 9227832 (Version 1)
Quarter: 2013Q2

REPORT INFORMATION
  Report Type: Spontaneous
  Country: PH (occurrence: PH)
  Receive Date: 20130412
  Receipt Date: 20130412
  Transmission Date: 20140414
  Serious: Yes (Disabling)
  Sender: FDA-Public Use
  Company Number: PH-AMGEN-PHLSP2013025215

PATIENT
  Age: 73 Year
  Sex: Female

DRUGS (2)
  1. PROLIA [Suspect]
     Indication: BREAST CANCER
     Dosage: 60 MG, Q6MO
     Route: 042
     Dates: start: 201203
  2. ANTINEOPLASTIC AGENT [Concomitant]
     Indication: BREAST CANCER

REACTIONS (2)
  - Muscle spasms [Recovering/Resolving]
  - Pain [Unknown]
